FAERS Safety Report 8507006-1 (Version None)
Quarter: 2012Q3

REPORT INFORMATION
  Report Type: 
  Country: None (occurrence: None)
  Receive Date: 20120712
  Receipt Date: 20120710
  Transmission Date: 20120928
  Serious: No
  Sender: FDA-Public Use
  Company Number: US-B.I. PHARMACEUTICALS,INC./RIDGEFIELD-2012-BP-14522BP

PATIENT
  Sex: Male

DRUGS (3)
  1. THAZYME [Concomitant]
     Indication: FLATULENCE
     Dosage: 180 MG
     Route: 048
     Dates: start: 20120619
  2. THAZYME [Concomitant]
     Indication: ABDOMINAL DISTENSION
  3. ZANTAC 75 [Suspect]
     Indication: DYSPEPSIA
     Dosage: 75 MG
     Route: 048
     Dates: start: 20120601, end: 20120616

REACTIONS (4)
  - MIGRAINE [None]
  - CONFUSIONAL STATE [None]
  - DISTURBANCE IN ATTENTION [None]
  - BACK PAIN [None]
